FAERS Safety Report 18938314 (Version 2)
Quarter: 2021Q4

REPORT INFORMATION
  Report Type: Spontaneous
  Country: US (occurrence: US)
  Receive Date: 20210225
  Receipt Date: 20211117
  Transmission Date: 20220303
  Serious: Yes (Hospitalization, Other)
  Sender: FDA-Public Use
  Company Number: US-PFIZER INC-2021145190

PATIENT
  Age: 69 Year
  Sex: Male

DRUGS (8)
  1. GABAPENTIN [Suspect]
     Active Substance: GABAPENTIN
     Indication: Neuropathy peripheral
     Dosage: 2400 MG, 4X/DAY (TOTAL, 9600 MG DAILY)
  2. GABAPENTIN [Suspect]
     Active Substance: GABAPENTIN
     Dosage: 900 MG, 3X/DAY
  3. GABAPENTIN [Suspect]
     Active Substance: GABAPENTIN
     Dosage: 600 MG, 3X/DAY
  4. GABAPENTIN [Suspect]
     Active Substance: GABAPENTIN
     Dosage: 800 MG, 3X/DAY
  5. PROPRANOLOL [Concomitant]
     Active Substance: PROPRANOLOL HYDROCHLORIDE
     Indication: Neuropathy peripheral
     Dosage: UNK
  6. CLONAZEPAM [Concomitant]
     Active Substance: CLONAZEPAM
     Indication: Neuropathy peripheral
     Dosage: UNK
  7. TOPIRAMATE [Concomitant]
     Active Substance: TOPIRAMATE
     Indication: Neuropathy peripheral
     Dosage: UNK
  8. NORTRIPTYLINE [Concomitant]
     Active Substance: NORTRIPTYLINE
     Indication: Neuropathy peripheral
     Dosage: UNK

REACTIONS (13)
  - Toxicity to various agents [Recovered/Resolved]
  - Myokymia [Recovered/Resolved]
  - Walking disability [Unknown]
  - Fall [Unknown]
  - Muscle contractions involuntary [Unknown]
  - Binocular eye movement disorder [Unknown]
  - Diplopia [Unknown]
  - Myoclonus [Recovered/Resolved]
  - Action tremor [Unknown]
  - Tremor [Unknown]
  - Prescribed overdose [Unknown]
  - Withdrawal syndrome [Unknown]
  - Off label use [Unknown]
